FAERS Safety Report 7901389-9 (Version None)
Quarter: 2011Q4

REPORT INFORMATION
  Report Type: 
  Country: None (occurrence: None)
  Receive Date: 20111108
  Receipt Date: 20111101
  Transmission Date: 20120403
  Serious: Yes (Death, Hospitalization)
  Sender: FDA-Public Use
  Company Number: PHHY2011CH97079

PATIENT
  Age: 69 Year
  Sex: Male

DRUGS (10)
  1. FLOXAPEN [Suspect]
     Dosage: 900 MG, QD
     Route: 048
     Dates: start: 20110525, end: 20110618
  2. CORDARONE [Concomitant]
     Dosage: 200 MG, QD
     Route: 048
     Dates: start: 20101201, end: 20110601
  3. MARCUMAR [Concomitant]
     Dosage: 3 MG, PRN
     Dates: end: 20110528
  4. RIMACTANE [Suspect]
     Dosage: 450 MG, QD
     Route: 042
     Dates: start: 20110525, end: 20110609
  5. HEPARIN [Concomitant]
     Dosage: 35000 U, QD
     Dates: end: 20110608
  6. TORSEMIDE [Concomitant]
     Dates: start: 20100901
  7. ZESTRIL [Concomitant]
     Dosage: 2.5 MG, UNK
     Dates: start: 20110602, end: 20110604
  8. METOLAZONE [Concomitant]
     Dosage: 5 MG, QD
     Dates: end: 20110501
  9. LEVOFLOXACIN [Concomitant]
     Dosage: 500 MG, UNK
     Dates: start: 20110615
  10. NEXIUM [Concomitant]
     Dates: start: 20110322

REACTIONS (6)
  - ANAEMIA [None]
  - HAEMATOMA [None]
  - HAEMODYNAMIC INSTABILITY [None]
  - HYPERBILIRUBINAEMIA [None]
  - BLOOD CATECHOLAMINES DECREASED [None]
  - SHOCK HAEMORRHAGIC [None]
